FAERS Safety Report 14179298 (Version 1)
Quarter: 2017Q4

REPORT INFORMATION
  Report Type: Spontaneous
  Country: SE (occurrence: SE)
  Receive Date: 20171110
  Receipt Date: 20171110
  Transmission Date: 20180321
  Serious: Yes (Other)
  Sender: FDA-Public Use
  Company Number: SE-TEVA-821811ROM

PATIENT
  Age: 17 Year
  Sex: Female

DRUGS (1)
  1. CLEOSENSA 28 [Suspect]
     Active Substance: DROSPIRENONE\ETHINYL ESTRADIOL
     Indication: CONTRACEPTION
     Route: 048
     Dates: start: 20170411, end: 20170824

REACTIONS (1)
  - Vaginal infection [Recovered/Resolved]

NARRATIVE: CASE EVENT DATE: 201705
